FAERS Safety Report 20429342 (Version 7)
Quarter: 2022Q3

REPORT INFORMATION
  Report Type: Spontaneous
  Country: JP (occurrence: JP)
  Receive Date: 20220204
  Receipt Date: 20220715
  Transmission Date: 20221027
  Serious: Yes (Death, Hospitalization, Other)
  Sender: FDA-Public Use
  Company Number: JP-GLAXOSMITHKLINE-JP2022JPN015558

PATIENT

DRUGS (10)
  1. SOTROVIMAB [Suspect]
     Active Substance: SOTROVIMAB
     Indication: COVID-19
     Dosage: 500 MG/100 ML/30 MINUTES
     Route: 041
     Dates: start: 20220125, end: 20220125
  2. FUROSEMIDE [Concomitant]
     Active Substance: FUROSEMIDE
     Indication: Cardiac failure congestive
     Dosage: 10 MG
     Route: 041
     Dates: start: 20220125, end: 20220126
  3. FUROSEMIDE [Concomitant]
     Active Substance: FUROSEMIDE
     Dosage: 20 MG
     Route: 041
     Dates: start: 20220127, end: 20220127
  4. FUROSEMIDE [Concomitant]
     Active Substance: FUROSEMIDE
     Dosage: 30 MG
     Route: 041
     Dates: start: 20220128, end: 20220129
  5. PIPERACILLIN SODIUM\TAZOBACTAM SODIUM [Concomitant]
     Active Substance: PIPERACILLIN SODIUM\TAZOBACTAM SODIUM
     Dosage: 5 G/12 HR
     Dates: start: 20220125, end: 20220127
  6. MEROPENEM [Concomitant]
     Active Substance: MEROPENEM
     Dosage: 0.5 G, 12 H
     Dates: start: 20220127, end: 20220128
  7. VANCOMYCIN HYDROCHLORIDE [Concomitant]
     Active Substance: VANCOMYCIN HYDROCHLORIDE
     Dosage: 1000 MG
     Dates: start: 20220127, end: 20220128
  8. VANCOMYCIN HYDROCHLORIDE [Concomitant]
     Active Substance: VANCOMYCIN HYDROCHLORIDE
     Dosage: 500 MG
     Dates: start: 20220128, end: 20220128
  9. VEKLURY [Concomitant]
     Active Substance: REMDESIVIR
     Dosage: UNK
     Dates: start: 20220128
  10. ACETAMINOPHEN [Concomitant]
     Active Substance: ACETAMINOPHEN
     Dosage: UNK
     Dates: start: 20220126

REACTIONS (7)
  - Cardiac failure [Fatal]
  - COVID-19 pneumonia [Fatal]
  - Decubitus ulcer [Fatal]
  - Sepsis [Fatal]
  - Hypoxia [Unknown]
  - Infusion related reaction [Recovered/Resolved]
  - Pyrexia [Recovered/Resolved]

NARRATIVE: CASE EVENT DATE: 20220125
